FAERS Safety Report 8363286-7 (Version None)
Quarter: 2012Q2

REPORT INFORMATION
  Report Type: 
  Country: None (occurrence: None)
  Receive Date: 20120516
  Receipt Date: 20111020
  Transmission Date: 20120825
  Serious: No
  Sender: FDA-Public Use
  Company Number: US-GLAXOSMITHKLINE-A0949897A

PATIENT
  Age: 54 Year
  Sex: Male

DRUGS (6)
  1. HUMALOG [Concomitant]
  2. BACTROBAN [Suspect]
     Indication: FUNGAL INFECTION
     Dosage: 1APP THREE TIMES PER DAY
     Route: 061
     Dates: start: 20110926, end: 20111015
  3. MINOCYCLINE HCL [Concomitant]
  4. AMLODIPINE BESYLATE [Concomitant]
  5. MICARDIS [Concomitant]
  6. LIPITOR [Concomitant]

REACTIONS (1)
  - ALOPECIA [None]
